FAERS Safety Report 9769530 (Version 2)
Quarter: 2014Q1

REPORT INFORMATION
  Report Type: Spontaneous
  Country: US (occurrence: US)
  Receive Date: 20131218
  Receipt Date: 20140125
  Transmission Date: 20141002
  Serious: Yes (Other)
  Sender: FDA-Public Use
  Company Number: US-UCBSA-105719

PATIENT
  Age: 41 Year
  Sex: Female
  Weight: 70.2 kg

DRUGS (1)
  1. CIMZIA [Suspect]
     Indication: CROHN^S DISEASE
     Dosage: STRENGTH : 400 MG JUST DONE INDUCTION DOSE
     Dates: start: 20130722, end: 201308

REACTIONS (1)
  - Abscess intestinal [Recovered/Resolved]
